FAERS Safety Report 5393568-2 (Version None)
Quarter: 2007Q3

REPORT INFORMATION
  Report Type: 
  Country: None (occurrence: None)
  Receive Date: 20070723
  Receipt Date: 20061020
  Transmission Date: 20080115
  Serious: No
  Sender: FDA-Public Use
  Company Number: A0618514A

PATIENT
  Age: 54 Year
  Sex: Male
  Weight: 111.8 kg

DRUGS (4)
  1. AVANDIA [Suspect]
     Route: 048
  2. TRICOR [Suspect]
     Route: 048
  3. FISH OIL [Concomitant]
  4. LIPITOR [Concomitant]

REACTIONS (5)
  - DRUG INTERACTION [None]
  - HIGH DENSITY LIPOPROTEIN DECREASED [None]
  - HYPERLIPIDAEMIA [None]
  - LIPIDS ABNORMAL [None]
  - LOW DENSITY LIPOPROTEIN INCREASED [None]
